FAERS Safety Report 12342852 (Version 1)
Quarter: 2016Q2

REPORT INFORMATION
  Report Type: Report from Study
  Country: US (occurrence: US)
  Receive Date: 20160506
  Receipt Date: 20160506
  Transmission Date: 20160815
  Serious: Yes (Hospitalization)
  Sender: FDA-Public Use
  Company Number: US-BAYER-2016-084549

PATIENT
  Age: 76 Year
  Sex: Male

DRUGS (2)
  1. ASPIRIN. [Suspect]
     Active Substance: ASPIRIN
  2. COUMADIN [Interacting]
     Active Substance: WARFARIN SODIUM

REACTIONS (2)
  - Post procedural haematoma [None]
  - Labelled drug-drug interaction medication error [None]
